FAERS Safety Report 5942077-8 (Version None)
Quarter: 2008Q4

REPORT INFORMATION
  Report Type: 
  Country: None (occurrence: None)
  Receive Date: 20081105
  Receipt Date: 20081031
  Transmission Date: 20090506
  Serious: Yes (Hospitalization)
  Sender: FDA-Public Use
  Company Number: B0539237A

PATIENT
  Age: 58 Year
  Sex: Female
  Weight: 58 kg

DRUGS (3)
  1. LAPATINIB [Suspect]
     Indication: BREAST CANCER METASTATIC
     Route: 048
     Dates: start: 20080908
  2. EPIRUBICIN [Suspect]
     Indication: BREAST CANCER METASTATIC
     Route: 042
     Dates: start: 20080908
  3. VINORELBINE [Suspect]
     Indication: BREAST CANCER METASTATIC
     Route: 042
     Dates: start: 20080908

REACTIONS (13)
  - ANAEMIA [None]
  - DIARRHOEA [None]
  - FEBRILE NEUTROPENIA [None]
  - HAEMATOTOXICITY [None]
  - HYPERBILIRUBINAEMIA [None]
  - HYPERCREATINAEMIA [None]
  - LABORATORY TEST ABNORMAL [None]
  - LEUKOPENIA [None]
  - LYMPHADENOPATHY [None]
  - PLEURAL EFFUSION [None]
  - PYREXIA [None]
  - RENAL IMPAIRMENT [None]
  - THROMBOCYTOPENIA [None]
